FAERS Safety Report 8001243-0 (Version None)
Quarter: 2011Q4

REPORT INFORMATION
  Report Type: 
  Country: None (occurrence: None)
  Receive Date: 20111222
  Receipt Date: 20111211
  Transmission Date: 20120403
  Serious: Yes (Other)
  Sender: FDA-Public Use
  Company Number: BE-ELI_LILLY_AND_COMPANY-BE201112003624

PATIENT
  Sex: Male

DRUGS (3)
  1. DUTASTERIDE [Concomitant]
  2. TAMSULOSIN HCL [Concomitant]
  3. CIALIS [Suspect]
     Dosage: 20 MG, UNKNOWN

REACTIONS (1)
  - EJACULATION DISORDER [None]
